FAERS Safety Report 6031845-2 (Version None)
Quarter: 2009Q1

REPORT INFORMATION
  Report Type: 
  Country: None (occurrence: None)
  Receive Date: 20090107
  Receipt Date: 20081229
  Transmission Date: 20090719
  Serious: Yes (Hospitalization)
  Sender: FDA-Public Use
  Company Number: 2008SP009323

PATIENT
  Age: 35 Year
  Sex: Female
  Weight: 73 kg

DRUGS (10)
  1. PEG-INTRON [Suspect]
     Indication: HEPATITIS C
     Dosage: 100 MCG; QW; SC, 60 MCG; QW; SC, 80 MCG; QW; SC, 40 MCG; QW; SC
     Route: 058
     Dates: start: 20050912, end: 20051002
  2. PEG-INTRON [Suspect]
     Indication: HEPATITIS C
     Dosage: 100 MCG; QW; SC, 60 MCG; QW; SC, 80 MCG; QW; SC, 40 MCG; QW; SC
     Route: 058
     Dates: start: 20051003, end: 20051031
  3. PEG-INTRON [Suspect]
     Indication: HEPATITIS C
     Dosage: 100 MCG; QW; SC, 60 MCG; QW; SC, 80 MCG; QW; SC, 40 MCG; QW; SC
     Route: 058
     Dates: start: 20051107, end: 20060420
  4. PEG-INTRON [Suspect]
     Indication: HEPATITIS C
     Dosage: 100 MCG; QW; SC, 60 MCG; QW; SC, 80 MCG; QW; SC, 40 MCG; QW; SC
     Route: 058
     Dates: start: 20060522, end: 20061016
  5. PEG-INTRON [Suspect]
     Indication: HEPATITIS C
     Dosage: 100 MCG; QW; SC, 60 MCG; QW; SC, 80 MCG; QW; SC, 40 MCG; QW; SC
     Route: 058
     Dates: start: 20061023, end: 20070305
  6. REBETOL [Suspect]
     Indication: HEPATITIS C
     Dosage: 800 MG; QD; PO, 600 MG; QD;  PO, 400 MG; QD; PO
     Route: 048
     Dates: start: 20050912, end: 20051016
  7. REBETOL [Suspect]
     Indication: HEPATITIS C
     Dosage: 800 MG; QD; PO, 600 MG; QD;  PO, 400 MG; QD; PO
     Route: 048
     Dates: start: 20051017, end: 20060420
  8. REBETOL [Suspect]
     Indication: HEPATITIS C
     Dosage: 800 MG; QD; PO, 600 MG; QD;  PO, 400 MG; QD; PO
     Route: 048
     Dates: start: 20060522, end: 20070305
  9. URSO 250 [Concomitant]
  10. SHAKUYAKUKANZOUTOU [Concomitant]

REACTIONS (4)
  - DIABETIC KETOACIDOSIS [None]
  - HAEMOGLOBIN DECREASED [None]
  - IRRITABILITY [None]
  - PLATELET COUNT DECREASED [None]
